FAERS Safety Report 7692449-9 (Version None)
Quarter: 2011Q3

REPORT INFORMATION
  Report Type: 
  Country: None (occurrence: None)
  Receive Date: 20110818
  Receipt Date: 20110815
  Transmission Date: 20111222
  Serious: Yes (Hospitalization)
  Sender: FDA-Public Use
  Company Number: US-ABBOTT-11P-163-0846367-00

PATIENT
  Weight: 70.37 kg

DRUGS (10)
  1. ANDROGEL [Suspect]
     Indication: BLOOD TESTOSTERONE DECREASED
  2. BENICAR [Concomitant]
     Indication: CARDIAC DISORDER
  3. ANDROGEL [Suspect]
  4. ANTIBIOTICS [Suspect]
     Indication: BURSITIS
     Route: 042
     Dates: start: 20101201
  5. UNKNOWN MEDICATION [Concomitant]
     Indication: ANTICOAGULANT THERAPY
  6. ZOCOR [Concomitant]
     Indication: BLOOD CHOLESTEROL INCREASED
  7. TOPROL-XL [Concomitant]
     Indication: PRODUCT USED FOR UNKNOWN INDICATION
  8. VITAMIN TAB [Concomitant]
     Indication: PRODUCT USED FOR UNKNOWN INDICATION
  9. ANTIBIOTICS [Suspect]
     Indication: CELLULITIS
  10. SYNTHROID [Concomitant]
     Indication: PRODUCT USED FOR UNKNOWN INDICATION

REACTIONS (6)
  - PRURITUS [None]
  - CELLULITIS [None]
  - ATRIAL FIBRILLATION [None]
  - BURSITIS [None]
  - BLOOD TESTOSTERONE INCREASED [None]
  - ERYTHEMA [None]
